FAERS Safety Report 7359866-8 (Version None)
Quarter: 2011Q1

REPORT INFORMATION
  Report Type: 
  Country: None (occurrence: None)
  Receive Date: 20110307
  Receipt Date: 20110225
  Transmission Date: 20110831
  Serious: Yes (Hospitalization)
  Sender: FDA-Public Use
  Company Number: 8044475

PATIENT
  Sex: Female
  Weight: 83 kg

DRUGS (8)
  1. PREDNISONE [Concomitant]
  2. CERTOLIZUMAB PEGOL [Suspect]
     Indication: RHEUMATOID ARTHRITIS
     Dosage: (400 MG 1X/2 WEEKS, - NR OF DOSES :3 SUBCUTANEOUS) ; (200 MG 1X/2 WEEKS SUBCUTANEOUS)
     Route: 058
     Dates: start: 20090201, end: 20090323
  3. CERTOLIZUMAB PEGOL [Suspect]
     Indication: RHEUMATOID ARTHRITIS
     Dosage: (400 MG 1X/2 WEEKS, - NR OF DOSES :3 SUBCUTANEOUS) ; (200 MG 1X/2 WEEKS SUBCUTANEOUS)
     Route: 058
     Dates: start: 20090126, end: 20090201
  4. METFORMIN [Concomitant]
  5. PAXIL [Concomitant]
  6. CALTRATE [Concomitant]
  7. NORCO [Concomitant]
  8. ALLSAN MULTIVITAMIN UND MINERAL /01558201/ [Concomitant]

REACTIONS (7)
  - DEHYDRATION [None]
  - URINARY TRACT INFECTION [None]
  - BLOOD GLUCOSE INCREASED [None]
  - ABSCESS [None]
  - NAUSEA [None]
  - TREMOR [None]
  - HYPONATRAEMIA [None]
